FAERS Safety Report 13622986 (Version 1)
Quarter: 2017Q2

REPORT INFORMATION
  Report Type: Report from Study
  Country: CA (occurrence: CA)
  Receive Date: 20170607
  Receipt Date: 20170607
  Transmission Date: 20170830
  Serious: Yes (Hospitalization, Other)
  Sender: FDA-Public Use
  Company Number: CA-BEH-2017080996

PATIENT
  Sex: Male

DRUGS (1)
  1. HIZENTRA [Suspect]
     Active Substance: HUMAN IMMUNOGLOBULIN G
     Indication: PRIMARY IMMUNODEFICIENCY SYNDROME
     Dosage: 12 G, QW
     Route: 058
     Dates: start: 20141218

REACTIONS (15)
  - Headache [Unknown]
  - Anuria [Unknown]
  - Nausea [Unknown]
  - Diarrhoea [Unknown]
  - Weight decreased [Unknown]
  - Fluid intake reduced [Unknown]
  - Chronic granulomatous disease [Unknown]
  - Pneumonia [Unknown]
  - Hyperacusis [Unknown]
  - Hyperhidrosis [Unknown]
  - Rash macular [Unknown]
  - Pyrexia [Unknown]
  - Somnolence [Unknown]
  - Vomiting [Unknown]
  - Ill-defined disorder [Unknown]
